FAERS Safety Report 6466509-4 (Version None)
Quarter: 2009Q4

REPORT INFORMATION
  Report Type: 
  Country: None (occurrence: None)
  Receive Date: 20091202
  Receipt Date: 20091104
  Transmission Date: 20100525
  Serious: No
  Sender: FDA-Public Use
  Company Number: US-BAYER-200915263BCC

PATIENT
  Sex: Male

DRUGS (4)
  1. ALEVE (CAPLET) [Suspect]
     Indication: DRUG USE FOR UNKNOWN INDICATION
     Dosage: UNIT DOSE: 220 MG
     Route: 048
  2. ALEVE (CAPLET) [Suspect]
     Dosage: UNIT DOSE: 220 MG
     Route: 048
     Dates: end: 20091008
  3. PRESCRIPTION STRENGTH NAPROXEN [Concomitant]
     Route: 065
  4. PRESCRIPTION STRENGTH NAPROXEN [Concomitant]
     Route: 065
     Dates: start: 20090101

REACTIONS (3)
  - ABDOMINAL PAIN [None]
  - OEDEMA PERIPHERAL [None]
  - WEIGHT INCREASED [None]
